FAERS Safety Report 8287976-X (Version None)
Quarter: 2012Q2

REPORT INFORMATION
  Report Type: 
  Country: None (occurrence: None)
  Receive Date: 20120416
  Receipt Date: 20120410
  Transmission Date: 20120825
  Serious: Yes (Other)
  Sender: FDA-Public Use
  Company Number: US-UCBSA-055022

PATIENT
  Age: 36 Year
  Sex: Female
  Weight: 57.27 kg

DRUGS (4)
  1. CIMZIA [Suspect]
     Indication: CROHN'S DISEASE
     Route: 058
     Dates: start: 20111001, end: 20120101
  2. REMICADE [Concomitant]
     Dosage: UNKNOWN DOSE
  3. METHOTREXATE [Concomitant]
     Dosage: UNKNOWN DOSE
     Route: 030
  4. AZATHIOPRINE [Concomitant]
     Dosage: UNKNOWN DOSE

REACTIONS (1)
  - THYROID CANCER METASTATIC [None]
